FAERS Safety Report 5078358-2 (Version None)
Quarter: 2006Q3

REPORT INFORMATION
  Report Type: 
  Country: None (occurrence: None)
  Receive Date: 20060811
  Receipt Date: 20060810
  Transmission Date: 20061208
  Serious: Yes (Other)
  Sender: FDA-Public Use
  Company Number: US-GLAXOSMITHKLINE-A0616149A

PATIENT
  Age: 61 Year
  Sex: Female

DRUGS (5)
  1. ADVAIR DISKUS 100/50 [Suspect]
     Indication: CHRONIC OBSTRUCTIVE PULMONARY DISEASE
     Route: 055
     Dates: start: 20040101
  2. HALDOL [Concomitant]
  3. SPIRIVA [Concomitant]
  4. LASIX [Concomitant]
  5. POTASSIUM [Concomitant]

REACTIONS (4)
  - MUSCLE SPASMS [None]
  - OEDEMA PERIPHERAL [None]
  - PSORIASIS [None]
  - RASH [None]
